FAERS Safety Report 5725970-0 (Version None)
Quarter: 2008Q2

REPORT INFORMATION
  Report Type: 
  Country: None (occurrence: None)
  Receive Date: 20080502
  Receipt Date: 20080429
  Transmission Date: 20081010
  Serious: Yes (Hospitalization, Other)
  Sender: FDA-Public Use
  Company Number: GB-BRISTOL-MYERS SQUIBB COMPANY-14147219

PATIENT
  Age: 51 Year
  Sex: Male

DRUGS (7)
  1. BARACLUDE [Suspect]
     Indication: HEPATIC CIRRHOSIS
     Route: 048
     Dates: start: 20080226, end: 20080319
  2. BARACLUDE [Suspect]
     Indication: HEPATITIS B VIRUS
     Route: 048
     Dates: start: 20080226, end: 20080319
  3. VIREAD [Suspect]
     Indication: HEPATIC CIRRHOSIS
     Route: 048
     Dates: start: 20080226, end: 20080319
  4. VIREAD [Suspect]
     Indication: HEPATITIS B VIRUS
     Route: 048
     Dates: start: 20080226, end: 20080319
  5. PROPANOL [Concomitant]
     Indication: PORTAL HYPERTENSION
     Route: 048
     Dates: start: 20071106
  6. ADEFOVIR DIPIVOXIL KIT [Concomitant]
  7. LAMIVUDINE [Concomitant]

REACTIONS (8)
  - HEPATIC CIRRHOSIS [None]
  - LARYNGEAL ERYTHEMA [None]
  - LARYNGEAL OEDEMA [None]
  - LARYNGOSPASM [None]
  - PRURITUS [None]
  - RASH MACULO-PAPULAR [None]
  - SEBORRHOEIC DERMATITIS [None]
  - TACHYCARDIA [None]
